FAERS Safety Report 9888138 (Version 2)
Quarter: 2014Q1

REPORT INFORMATION
  Report Type: Spontaneous
  Country: US (occurrence: US)
  Receive Date: 20140211
  Receipt Date: 20140213
  Transmission Date: 20141002
  Serious: No
  Sender: FDA-Public Use
  Company Number: US-PFIZER INC-2014037364

PATIENT
  Age: 31 Year
  Sex: Female
  Weight: 53.52 kg

DRUGS (2)
  1. EFFEXOR [Suspect]
     Dosage: UNK
  2. ALPRAZOLAM [Concomitant]
     Indication: PANIC ATTACK
     Dosage: 1 MG, 2X/DAY

REACTIONS (1)
  - Drug ineffective [Unknown]
